APPROVED DRUG PRODUCT: ZOFRAN AND DEXTROSE IN PLASTIC CONTAINER
Active Ingredient: ONDANSETRON HYDROCHLORIDE
Strength: EQ 0.64MG BASE/ML **Federal Register determination that product was not discontinued or withdrawn for safety or effectiveness reasons**
Dosage Form/Route: INJECTABLE;INJECTION
Application: N020403 | Product #001
Applicant: GLAXOSMITHKLINE
Approved: Jan 31, 1995 | RLD: Yes | RS: No | Type: DISCN